FAERS Safety Report 13717431 (Version 4)
Quarter: 2018Q4

REPORT INFORMATION
  Report Type: Spontaneous
  Country: FR (occurrence: FR)
  Receive Date: 20170705
  Receipt Date: 20181210
  Transmission Date: 20190204
  Serious: Yes (Hospitalization, Other)
  Sender: FDA-Public Use
  Company Number: FR-GLAXOSMITHKLINE-FR2017GSK099605

PATIENT
  Age: 24 Year
  Sex: Female
  Weight: 51 kg

DRUGS (5)
  1. ACICLOVIR BIOGARAN [Suspect]
     Active Substance: ACYCLOVIR
     Indication: HERPES SIMPLEX
     Dosage: 4 DF, TABLET, BID
     Route: 048
     Dates: start: 20170606, end: 20170607
  2. DAFALGAN CODEINE [Suspect]
     Active Substance: ACETAMINOPHEN\CODEINE PHOSPHATE
     Indication: MIGRAINE
     Dosage: 1 DF, QD
     Route: 048
     Dates: start: 20170606, end: 20170607
  3. ACICLOVIR BIOGARAN [Suspect]
     Active Substance: ACYCLOVIR
     Indication: HERPES SIMPLEX
     Dosage: 5 DF, APPLICATION(S), UNK
     Route: 003
     Dates: start: 20170606, end: 20170607
  4. KETUM [Suspect]
     Active Substance: KETOPROFEN
     Indication: PAIN
     Dosage: UNK (2-3 TABLETS DAILY)
     Route: 048
     Dates: start: 20170603, end: 20170607
  5. ACETAMINOPHEN. [Suspect]
     Active Substance: ACETAMINOPHEN
     Indication: MIGRAINE
     Dosage: 1 DF, QD
     Route: 048
     Dates: start: 20170606, end: 20170607

REACTIONS (3)
  - Off label use [Unknown]
  - Pancreatitis acute [Recovered/Resolved]
  - Prescribed overdose [Unknown]

NARRATIVE: CASE EVENT DATE: 20170608
